FAERS Safety Report 10983112 (Version 4)
Quarter: 2015Q2

REPORT INFORMATION
  Report Type: Spontaneous
  Country: US (occurrence: US)
  Receive Date: 20150403
  Receipt Date: 20150615
  Transmission Date: 20150821
  Serious: Yes (Other)
  Sender: FDA-Public Use
  Company Number: US-PFIZER INC-2015109675

PATIENT
  Age: 73 Year
  Sex: Female

DRUGS (11)
  1. SUTENT [Suspect]
     Active Substance: SUNITINIB MALATE
     Indication: GASTROINTESTINAL STROMAL TUMOUR
     Dosage: 50 MG, CYCLIC (28 DAYS ON14 DAYS OFF)
     Dates: start: 20150307, end: 20150325
  2. HYDROCHLOROTHIAZIDE/LISINOPRIL [Concomitant]
     Dosage: 12.5 MG, UNK
  3. PROLENSA [Concomitant]
     Active Substance: BROMFENAC SODIUM
     Dosage: 0.07 %, 1X/DAY
  4. GLEEVEC [Concomitant]
     Active Substance: IMATINIB MESYLATE
     Dosage: UNK, 1X/DAY (400)
  5. MELOXICAM. [Concomitant]
     Active Substance: MELOXICAM
     Dosage: UNK, AS NEEDED
  6. PREDNISOLONE ACETATE. [Concomitant]
     Active Substance: PREDNISOLONE ACETATE
     Dosage: 10 MG, 3X/DAY
  7. KLOR-CON [Concomitant]
     Active Substance: POTASSIUM CHLORIDE
     Dosage: 10 MEQ, 1X/DAY
  8. SUTENT [Suspect]
     Active Substance: SUNITINIB MALATE
     Dosage: 50 MG, CYCLIC (1 DAILY X 28DAYS, THEN 14 DAYS OFF)
     Route: 048
     Dates: start: 20150225, end: 20150325
  9. METFORMIN [Concomitant]
     Active Substance: METFORMIN HYDROCHLORIDE
     Dosage: 1000 MG, 1X/DAY
  10. OFLOXACIN. [Concomitant]
     Active Substance: OFLOXACIN
     Dosage: UNK, 3X/DAY
  11. LEVOTHYROXINE SODIUM. [Concomitant]
     Active Substance: LEVOTHYROXINE SODIUM
     Dosage: 125 ?G, 1X/DAY

REACTIONS (10)
  - Fatigue [Unknown]
  - Oral pain [Unknown]
  - Dysgeusia [Unknown]
  - Glossodynia [Unknown]
  - Tooth disorder [Unknown]
  - Eating disorder [Unknown]
  - Diarrhoea [Unknown]
  - Stomatitis [Unknown]
  - Quality of life decreased [Unknown]
  - Eye disorder [Unknown]

NARRATIVE: CASE EVENT DATE: 20150315
